FAERS Safety Report 5031959-X (Version None)
Quarter: 2006Q2

REPORT INFORMATION
  Report Type: 
  Country: None (occurrence: None)
  Receive Date: 20060619
  Receipt Date: 20060612
  Transmission Date: 20061013
  Serious: Yes (Hospitalization, Other)
  Sender: FDA-Public Use
  Company Number: FR200603006189

PATIENT
  Age: 53 Year
  Sex: Male
  Weight: 60 kg

DRUGS (5)
  1. ALIMTA [Suspect]
     Indication: LUNG NEOPLASM MALIGNANT
     Dosage: 500 MG/M2, OTHER, INTRAVENOUS; 400 MG/M2, OTHER, INTRAVENOUS
     Route: 042
     Dates: start: 20051129, end: 20060101
  2. ALIMTA [Suspect]
     Indication: LUNG NEOPLASM MALIGNANT
     Dosage: 500 MG/M2, OTHER, INTRAVENOUS; 400 MG/M2, OTHER, INTRAVENOUS
     Route: 042
     Dates: start: 20060101
  3. FOLIC ACID [Concomitant]
  4. CYANOCOBALAMIN [Concomitant]
  5. DEXAMETHASONE [Concomitant]

REACTIONS (6)
  - ANAEMIA [None]
  - CHOLESTASIS [None]
  - CONDITION AGGRAVATED [None]
  - HEPATIC STEATOSIS [None]
  - NEUTROPENIA [None]
  - SENSATION OF HEAVINESS [None]
